FAERS Safety Report 8822407 (Version 1)
Quarter: 2012Q4

REPORT INFORMATION
  Report Type: Report from Study
  Country: JP (occurrence: JP)
  Receive Date: 20121003
  Receipt Date: 20121003
  Transmission Date: 20130627
  Serious: Yes (Other)
  Sender: FDA-Public Use
  Company Number: JP-VERTEX PHARMACEUTICAL INC.-2012-022179

PATIENT
  Age: 51 Year
  Sex: Female

DRUGS (24)
  1. VX-950 [Suspect]
     Indication: HEPATITIS C
     Dosage: 1500 mg, qd
     Route: 048
     Dates: start: 20120611, end: 20120723
  2. REBETOL [Suspect]
     Indication: HEPATITIS C
     Dosage: 800 mg, qd
     Route: 048
     Dates: start: 20120611, end: 20120621
  3. REBETOL [Suspect]
     Dosage: 400 mg, qd
     Route: 048
     Dates: start: 20120621, end: 20120625
  4. REBETOL [Suspect]
     Dosage: 200 mg, qd
     Route: 048
     Dates: start: 20120626
  5. REBETOL [Suspect]
     Dosage: 600 mg, qd
     Route: 048
     Dates: end: 20120813
  6. REBETOL [Suspect]
     Dosage: 400 mg, qd
     Route: 048
     Dates: start: 20120813, end: 20120909
  7. REBETOL [Suspect]
     Dosage: 600 mg, qd
     Route: 048
     Dates: start: 20120910
  8. PEGINTERFERON ALFA-2B [Concomitant]
     Dosage: 1.5 UNK, qw
     Route: 058
     Dates: start: 20120611
  9. BLOPRESS [Concomitant]
     Dosage: 4 mg, qd
     Route: 048
  10. MAINTATE [Concomitant]
     Dosage: 2.5 mg, qd
     Route: 048
  11. TERPENONE [Concomitant]
     Dosage: 2 DF, qd
     Route: 048
  12. JANUVIA [Concomitant]
     Dosage: 1 DF, qd
     Route: 048
  13. MILNACIPRAN HYDROCHLORIDE [Concomitant]
     Dosage: 4 DF, qd
     Route: 048
  14. SULPIRIDE [Concomitant]
     Dosage: 2 DF, qd
     Route: 048
  15. PALGIN                             /00749301/ [Concomitant]
     Dosage: 1 DF, qd
     Route: 048
  16. ANAFRANIL [Concomitant]
     Dosage: 1 DF, qd
     Route: 048
  17. SALOBEL [Concomitant]
     Dosage: 1 DF, qd
     Route: 048
     Dates: start: 20120619
  18. PREDONINE                          /00016201/ [Concomitant]
     Dosage: 10 mg, qd
     Route: 048
     Dates: start: 20120730, end: 20120813
  19. PREDONINE                          /00016201/ [Concomitant]
     Dosage: 5 mg, qd
     Route: 048
     Dates: start: 20120814, end: 20120816
  20. PREDONINE                          /00016201/ [Concomitant]
     Dosage: 20 mg, qd
     Route: 048
     Dates: start: 20120817, end: 20120820
  21. PREDONINE                          /00016201/ [Concomitant]
     Dosage: 15 mg, qd
     Route: 048
     Dates: start: 20120821, end: 20120824
  22. PREDONINE                          /00016201/ [Concomitant]
     Dosage: 10 mg, qd
     Route: 048
     Dates: start: 20120825, end: 20120902
  23. PREDONINE                          /00016201/ [Concomitant]
     Dosage: 7.5 mg, qd
     Route: 048
     Dates: start: 20120903
  24. TALION                             /01587402/ [Concomitant]
     Dosage: 20 mg, qd
     Route: 048
     Dates: start: 20120817

REACTIONS (2)
  - Drug eruption [Recovered/Resolved]
  - Dermatitis exfoliative [Recovered/Resolved]
